FAERS Safety Report 17090659 (Version 3)
Quarter: 2019Q4

REPORT INFORMATION
  Report Type: Report from Study
  Country: None (occurrence: US)
  Receive Date: 20191129
  Receipt Date: 20191217
  Transmission Date: 20200122
  Serious: Yes (Other)
  Sender: FDA-Public Use
  Company Number: US-ABBVIE-19K-163-3173413-00

PATIENT
  Age: 84 Year
  Sex: Female

DRUGS (2)
  1. VENCLEXTA [Suspect]
     Active Substance: VENETOCLAX
     Indication: ACUTE MYELOID LEUKAEMIA
     Dosage: EVERY EVENING WITH DINNER
     Route: 048
     Dates: start: 20191118
  2. ALLOPURINOL. [Concomitant]
     Active Substance: ALLOPURINOL
     Indication: PRODUCT USED FOR UNKNOWN INDICATION
     Route: 065

REACTIONS (13)
  - Fatigue [Unknown]
  - Agitation [Unknown]
  - Haemoglobin decreased [Unknown]
  - Aspartate aminotransferase increased [Recovered/Resolved]
  - Infected cyst [Unknown]
  - Hepatic function abnormal [Recovered/Resolved]
  - Decreased activity [Unknown]
  - Neutropenia [Unknown]
  - Diarrhoea [Unknown]
  - Blood sodium decreased [Unknown]
  - Nausea [Unknown]
  - Stomatitis [Unknown]
  - Depression [Not Recovered/Not Resolved]

NARRATIVE: CASE EVENT DATE: 2019
